FAERS Safety Report 9543925 (Version 3)
Quarter: 2014Q1

REPORT INFORMATION
  Report Type: Spontaneous
  Country: US (occurrence: US)
  Receive Date: 20130923
  Receipt Date: 20140218
  Transmission Date: 20141002
  Serious: Yes (Hospitalization)
  Sender: FDA-Public Use
  Company Number: US-B.I. PHARMACEUTICALS,INC./RIDGEFIELD-2013-BI-29205BP

PATIENT
  Age: 79 Year
  Sex: Male
  Weight: 108.86 kg

DRUGS (14)
  1. PRADAXA [Suspect]
     Indication: ANTICOAGULANT THERAPY
     Dosage: 150 MG
     Route: 048
     Dates: start: 20101115, end: 20120515
  2. PRADAXA [Suspect]
     Indication: ATRIAL FIBRILLATION
  3. ELAVIL [Concomitant]
     Route: 048
     Dates: start: 2004
  4. LISINOPRIL [Concomitant]
     Dosage: 80 MG
     Route: 048
     Dates: start: 2005
  5. DILANTIN [Concomitant]
     Dosage: 200 MG
     Route: 048
     Dates: start: 2005
  6. TAMSULOSIN [Concomitant]
     Dates: start: 2011
  7. METOPROLOL TARTRATE [Concomitant]
     Dosage: 100 MG
     Route: 048
  8. FUROSEMIDE [Concomitant]
  9. ALLOPURINOL [Concomitant]
  10. FOLIC ACID [Concomitant]
  11. PYRIDIUM [Concomitant]
     Dosage: 100 MG
  12. SEPTRA [Concomitant]
     Route: 048
  13. CENTRUM [Concomitant]
     Route: 048
  14. MULTIVITAMIN [Concomitant]

REACTIONS (7)
  - Haematuria [Recovered/Resolved]
  - Gastrointestinal haemorrhage [Unknown]
  - Haemorrhagic anaemia [Unknown]
  - Coagulopathy [Unknown]
  - Renal failure acute [Unknown]
  - Contusion [Unknown]
  - Toxicity to various agents [Unknown]
